FAERS Safety Report 12850243 (Version 1)
Quarter: 2016Q4

REPORT INFORMATION
  Report Type: Report from Study
  Country: US (occurrence: US)
  Receive Date: 20161014
  Receipt Date: 20161014
  Transmission Date: 20170207
  Serious: Yes (Congenital Anomaly)
  Sender: FDA-Public Use
  Company Number: US-TEVA-571681USA

PATIENT
  Age: 0 Day
  Sex: Male

DRUGS (10)
  1. PROVIGIL [Suspect]
     Active Substance: MODAFINIL
     Indication: COMPLEX PARTIAL SEIZURES
  2. FOLIC ACID. [Concomitant]
     Active Substance: FOLIC ACID
     Indication: PROPHYLAXIS
     Dosage: 2 MILLIGRAM DAILY;
     Route: 064
  3. FLINTSTONES MULTIPLE VITAMINS [Concomitant]
     Route: 064
  4. PROVIGIL [Suspect]
     Active Substance: MODAFINIL
     Indication: EPILEPSY
     Dosage: 200 MILLIGRAM DAILY; IN A.M.
     Route: 064
     Dates: start: 2002
  5. PRENATAL VITAMINS [Concomitant]
     Active Substance: VITAMINS
     Indication: PREGNANCY
     Dosage: 2 GUMMIES PER DAY
     Route: 064
     Dates: start: 2013
  6. PRENATAL VITAMINS [Concomitant]
     Active Substance: VITAMINS
     Route: 064
  7. PREVACID [Concomitant]
     Active Substance: LANSOPRAZOLE
     Route: 064
  8. ZYRTEC [Concomitant]
     Active Substance: CETIRIZINE HYDROCHLORIDE
     Indication: HYPERSENSITIVITY
     Dosage: 10 MILLIGRAM DAILY; IN P.M.
     Route: 064
  9. LAMICTAL [Concomitant]
     Active Substance: LAMOTRIGINE
     Indication: EPILEPSY
     Dosage: 700 MILLIGRAM DAILY; STARTED 2001/2002
     Route: 064
  10. LAMICTAL [Concomitant]
     Active Substance: LAMOTRIGINE

REACTIONS (4)
  - Ear infection [Recovered/Resolved]
  - Foetal exposure during pregnancy [Unknown]
  - Dacryostenosis congenital [Recovered/Resolved]
  - Bone disorder [Recovered/Resolved]

NARRATIVE: CASE EVENT DATE: 20141209
